FAERS Safety Report 23295735 (Version 1)
Quarter: 2023Q4

REPORT INFORMATION
  Report Type: Spontaneous
  Country: CN (occurrence: CN)
  Receive Date: 20231214
  Receipt Date: 20231214
  Transmission Date: 20240110
  Serious: Yes (Life-Threatening, Hospitalization, Other)
  Sender: FDA-Public Use
  Company Number: CN-ABBVIE-5535053

PATIENT
  Sex: Male
  Weight: 68 kg

DRUGS (5)
  1. VENETOCLAX [Suspect]
     Active Substance: VENETOCLAX
     Indication: Acute myeloid leukaemia
     Dosage: 200 MILLIGRAM; DAY 2
     Route: 048
     Dates: start: 20231105, end: 20231105
  2. VENETOCLAX [Suspect]
     Active Substance: VENETOCLAX
     Indication: Acute myeloid leukaemia
     Dosage: 400 MILLIGRAM; DAY 3 TO 12
     Route: 048
     Dates: start: 20231106, end: 20231115
  3. VENETOCLAX [Suspect]
     Active Substance: VENETOCLAX
     Indication: Acute myeloid leukaemia
     Dosage: 100 MILLIGRAM; DAY 1
     Route: 048
     Dates: start: 20231104, end: 20231104
  4. DAUNORUBICIN HYDROCHLORIDE [Suspect]
     Active Substance: DAUNORUBICIN HYDROCHLORIDE
     Indication: Acute myeloid leukaemia
     Dosage: 60 MILLIGRAM; FOR INJECTION; DAY 1 TO 3
     Route: 065
     Dates: start: 20231104, end: 20231107
  5. CYTARABINE [Suspect]
     Active Substance: CYTARABINE
     Indication: Acute myeloid leukaemia
     Dosage: 75 MILLIGRAM; FOR INJECTION; Q12H DAY 1 TO 7
     Route: 065
     Dates: start: 20231104, end: 20231111

REACTIONS (6)
  - Myelosuppression [Recovering/Resolving]
  - Hyperpyrexia [Recovered/Resolved]
  - Hyperpyrexia [Recovered/Resolved]
  - Temperature intolerance [Not Recovered/Not Resolved]
  - Pulmonary mass [Unknown]
  - Rash [Unknown]

NARRATIVE: CASE EVENT DATE: 20230101
